FAERS Safety Report 6527783-9 (Version None)
Quarter: 2010Q1

REPORT INFORMATION
  Report Type: 
  Country: None (occurrence: None)
  Receive Date: 20100106
  Receipt Date: 20091229
  Transmission Date: 20100710
  Serious: Yes (Hospitalization)
  Sender: FDA-Public Use
  Company Number: CN-JNJFOC-20091207518

PATIENT
  Sex: Male
  Weight: 68 kg

DRUGS (2)
  1. BLINDED; INFLIXIMAB, RECOMBINANT [Suspect]
     Indication: PSORIASIS
     Route: 042
     Dates: start: 20090629, end: 20091125
  2. PLACEBO [Suspect]
     Indication: PSORIASIS
     Route: 042

REACTIONS (1)
  - TUBERCULOUS PLEURISY [None]
